FAERS Safety Report 12637039 (Version 1)
Quarter: 2016Q3

REPORT INFORMATION
  Report Type: Not Available
  Country: US (occurrence: US)
  Receive Date: 20160809
  Receipt Date: 20160809
  Transmission Date: 20161109
  Serious: Yes (Hospitalization)
  Sender: FDA-Public Use
  Company Number: US-BEH-2014042184

PATIENT
  Age: 76 Year
  Sex: Male
  Weight: 115 kg

DRUGS (3)
  1. TYLENOL [Concomitant]
     Active Substance: ACETAMINOPHEN
     Route: 048
     Dates: start: 20131106
  2. BENADRYL [Concomitant]
     Active Substance: DIPHENHYDRAMINE HYDROCHLORIDE
     Route: 042
     Dates: start: 20131106
  3. PRIVIGEN [Suspect]
     Active Substance: HUMAN IMMUNOGLOBULIN G
     Indication: CHRONIC INFLAMMATORY DEMYELINATING POLYRADICULONEUROPATHY
     Dosage: STARTED AT 100 ML/H TITRATED UP TO 150 ML/H
     Route: 042
     Dates: start: 20131106

REACTIONS (14)
  - Peripheral coldness [Unknown]
  - Paraesthesia [Unknown]
  - Dysarthria [Unknown]
  - Feeling abnormal [Unknown]
  - Chest discomfort [Recovered/Resolved]
  - Dyspnoea [Unknown]
  - Soliloquy [Unknown]
  - Grip strength decreased [Unknown]
  - Hallucination, auditory [Unknown]
  - Hypoaesthesia [Unknown]
  - Flushing [Unknown]
  - Coordination abnormal [Unknown]
  - Hallucination, visual [Unknown]
  - Blood pressure increased [Unknown]

NARRATIVE: CASE EVENT DATE: 20131106
